FAERS Safety Report 9304548 (Version 1)
Quarter: 2013Q2

REPORT INFORMATION
  Report Type: Spontaneous
  Country: US (occurrence: US)
  Receive Date: 20130523
  Receipt Date: 20130523
  Transmission Date: 20140414
  Serious: No
  Sender: FDA-Public Use
  Company Number: US-009507513-1305USA011138

PATIENT
  Age: 65 Year
  Sex: Female

DRUGS (4)
  1. STROMECTOL [Suspect]
     Indication: ACARODERMATITIS
     Dosage: ONE DOSE OF 6 TABLETS (3 MG
     Route: 048
     Dates: start: 201303
  2. STROMECTOL [Suspect]
     Dosage: ONE DOSE OF 6 TABLETS (3 MG EACH)
     Route: 048
     Dates: start: 2013
  3. STROMECTOL [Suspect]
     Dosage: ONE DOSE OF 6 TABLETS (3 MG EACH)
     Route: 048
     Dates: start: 2013
  4. STROMECTOL [Suspect]
     Dosage: ONE DOSE OF 6 TABLETS (3 MG EACH)
     Route: 048
     Dates: start: 2013

REACTIONS (3)
  - Therapeutic response decreased [Not Recovered/Not Resolved]
  - Pruritus [Not Recovered/Not Resolved]
  - Fatigue [Not Recovered/Not Resolved]
